FAERS Safety Report 13002867 (Version 1)
Quarter: 2016Q4

REPORT INFORMATION
  Report Type: Spontaneous
  Country: US (occurrence: US)
  Receive Date: 20161205
  Receipt Date: 20161205
  Transmission Date: 20170207
  Serious: Yes (Other)
  Sender: FDA-Public Use
  Company Number: None

PATIENT
  Age: 40 Year
  Sex: Male
  Weight: 83.25 kg

DRUGS (1)
  1. CHANTIX [Suspect]
     Active Substance: VARENICLINE TARTRATE
     Indication: SMOKING CESSATION THERAPY
     Dates: start: 20140620, end: 20140704

REACTIONS (6)
  - Loss of employment [None]
  - Legal problem [None]
  - Physical assault [None]
  - Wrong technique in product usage process [None]
  - Economic problem [None]
  - Aggression [None]

NARRATIVE: CASE EVENT DATE: 20140704
